FAERS Safety Report 6572476-5 (Version None)
Quarter: 2010Q1

REPORT INFORMATION
  Report Type: 
  Country: None (occurrence: None)
  Receive Date: 20100205
  Receipt Date: 20100127
  Transmission Date: 20100710
  Serious: Yes (Other)
  Sender: FDA-Public Use
  Company Number: GB-MERCK-1002GBR00004

PATIENT
  Age: 64 Year
  Sex: Female

DRUGS (4)
  1. PRINIVIL [Suspect]
     Indication: HYPERTENSION
     Route: 048
  2. BENDROFLUMETHIAZIDE [Concomitant]
     Indication: HYPERTENSION
     Route: 065
  3. ATENOLOL [Concomitant]
     Indication: HYPERTENSION
     Route: 065
  4. FELODIPINE [Suspect]
     Indication: HYPERTENSION
     Route: 065

REACTIONS (3)
  - BREAST CANCER [None]
  - DRUG INEFFECTIVE [None]
  - TELANGIECTASIA [None]
